FAERS Safety Report 5201291-X (Version None)
Quarter: 2007Q1

REPORT INFORMATION
  Report Type: 
  Country: None (occurrence: None)
  Receive Date: 20070108
  Receipt Date: 20061227
  Transmission Date: 20070707
  Serious: Yes (Hospitalization)
  Sender: FDA-Public Use
  Company Number: FR-ELI_LILLY_AND_COMPANY-FR200612004549

PATIENT
  Age: 90 Year
  Sex: Female

DRUGS (10)
  1. FORTEO [Suspect]
     Indication: OSTEOPOROSIS
     Dosage: 20 UG, DAILY (1/D)
     Route: 058
     Dates: start: 20060430, end: 20061206
  2. ASPIRIN [Concomitant]
     Dosage: 100 MG, UNK
  3. ESOMEPRAZOLE MAGNESIUM [Concomitant]
     Dosage: 20 MG, UNK
  4. VASTAREL [Concomitant]
     Dosage: 35 MG, EACH MORNING
  5. VASTAREL [Concomitant]
     Dosage: 35 MG, EACH EVENING
  6. PRAVASTATIN [Concomitant]
     Indication: HYPERCHOLESTEROLAEMIA
     Dosage: 1 D/F, EACH EVENING
  7. ZESTRIL [Concomitant]
     Indication: HYPERTENSION
     Dosage: 1 D/F, EACH MORNING
  8. LASIX [Concomitant]
     Indication: HYPERTENSION
     Dosage: 40 MG, EACH MORNING
  9. LASIX [Concomitant]
     Dosage: 20 MG, EACH EVENING
  10. COLCHICINE [Concomitant]
     Indication: GOUT

REACTIONS (1)
  - MYOCARDIAL INFARCTION [None]
